FAERS Safety Report 17373375 (Version 1)
Quarter: 2020Q1

REPORT INFORMATION
  Report Type: Spontaneous
  Country: US (occurrence: US)
  Receive Date: 20200205
  Receipt Date: 20200205
  Transmission Date: 20200409
  Serious: No
  Sender: FDA-Public Use
  Company Number: US-009507513-2001USA011573

PATIENT
  Age: 37 Year
  Sex: Female

DRUGS (12)
  1. TRAZODONE HYDROCHLORIDE. [Concomitant]
     Active Substance: TRAZODONE HYDROCHLORIDE
  2. PERCOCET [Concomitant]
     Active Substance: ACETAMINOPHEN\OXYCODONE HYDROCHLORIDE
  3. FOLLISTIM AQ [Suspect]
     Active Substance: FOLLITROPIN
     Dosage: 150 UNITS, QD
     Route: 058
     Dates: start: 20190201
  4. FOLLISTIM AQ [Suspect]
     Active Substance: FOLLITROPIN
  5. MENOPUR [Concomitant]
     Active Substance: FOLLITROPIN\LUTEINIZING HORMONE
  6. VISTARIL [Concomitant]
     Active Substance: HYDROXYZINE PAMOATE
  7. GABAPENTIN. [Concomitant]
     Active Substance: GABAPENTIN
  8. DILAUDID [Concomitant]
     Active Substance: HYDROMORPHONE HYDROCHLORIDE
  9. GANIRELIX ACETATE INJECTION [Suspect]
     Active Substance: GANIRELIX ACETATE
     Dosage: 250 MICROGRAM, QD FOR 5 DAYS
     Route: 058
     Dates: start: 20190828
  10. METFORMIN [Concomitant]
     Active Substance: METFORMIN HYDROCHLORIDE
  11. SYNTHROID [Concomitant]
     Active Substance: LEVOTHYROXINE SODIUM
  12. WELLBUTRIN [Concomitant]
     Active Substance: BUPROPION HYDROCHLORIDE

REACTIONS (2)
  - Injection site pain [Unknown]
  - Hot flush [Unknown]

NARRATIVE: CASE EVENT DATE: 2019
